FAERS Safety Report 11897850 (Version 1)
Quarter: 2016Q1

REPORT INFORMATION
  Report Type: Spontaneous
  Country: CA (occurrence: CA)
  Receive Date: 20160108
  Receipt Date: 20160108
  Transmission Date: 20160526
  Serious: Yes (Hospitalization, Disabling)
  Sender: FDA-Public Use
  Company Number: CA-TEVA-622695ACC

PATIENT
  Age: 34 Year
  Sex: Female
  Weight: 70 kg

DRUGS (2)
  1. YAZ [Concomitant]
     Active Substance: DROSPIRENONE\ETHINYL ESTRADIOL
  2. COPAXONE [Suspect]
     Active Substance: GLATIRAMER ACETATE
     Indication: MULTIPLE SCLEROSIS
     Dosage: 20 MILLIGRAM DAILY;
     Route: 058

REACTIONS (8)
  - Wound [Recovering/Resolving]
  - Injection site reaction [Recovering/Resolving]
  - Pain [Recovering/Resolving]
  - Scar [Recovering/Resolving]
  - Pruritus [Recovering/Resolving]
  - Scab [Recovering/Resolving]
  - Feeling hot [Recovering/Resolving]
  - Rash [Recovering/Resolving]
